FAERS Safety Report 8022640-3 (Version None)
Quarter: 2011Q4

REPORT INFORMATION
  Report Type: 
  Country: None (occurrence: None)
  Receive Date: 20111230
  Receipt Date: 20111221
  Transmission Date: 20120403
  Serious: Yes (Hospitalization)
  Sender: FDA-Public Use
  Company Number: B0771161A

PATIENT
  Age: 47 Year
  Sex: Female

DRUGS (4)
  1. DIAZEPAM [Suspect]
     Indication: PRODUCT USED FOR UNKNOWN INDICATION
  2. PROPRANOLOL HYDROCHLORIDE [Suspect]
     Indication: PRODUCT USED FOR UNKNOWN INDICATION
     Dosage: 40 MG / THREE TIMES PER DAY
  3. ZIPRASIDONE HCL [Suspect]
     Indication: PRODUCT USED FOR UNKNOWN INDICATION
  4. VENLAFAXINE HYDROCHLORIDE [Concomitant]

REACTIONS (4)
  - SINUS BRADYCARDIA [None]
  - ELECTROCARDIOGRAM QT PROLONGED [None]
  - OVERDOSE [None]
  - SOMNOLENCE [None]
